FAERS Safety Report 13873294 (Version 1)
Quarter: 2017Q3

REPORT INFORMATION
  Report Type: Not Available
  Country: TR (occurrence: TR)
  Receive Date: 20170816
  Receipt Date: 20170816
  Transmission Date: 20171127
  Serious: Yes (Hospitalization)
  Sender: FDA-Public Use
  Company Number: TR-ANIPHARMA-2017-TR-000027

PATIENT
  Age: 28 Year
  Sex: Female

DRUGS (3)
  1. QUETIAPINE. [Suspect]
     Active Substance: QUETIAPINE
     Dosage: 600MG/DAY
  2. BIPERIDEN [Concomitant]
     Active Substance: BIPERIDEN
     Dosage: 6MG/DAY
  3. LITHIUM CARBONATE (NON-SPECIFIC) [Suspect]
     Active Substance: LITHIUM
     Dosage: 1200MG/DAY

REACTIONS (1)
  - Camptocormia [Recovered/Resolved]
